FAERS Safety Report 26047331 (Version 1)
Quarter: 2025Q4

REPORT INFORMATION
  Report Type: Spontaneous
  Country: CN (occurrence: CN)
  Receive Date: 20251114
  Receipt Date: 20251114
  Transmission Date: 20260118
  Serious: Yes (Life-Threatening, Hospitalization, Other)
  Sender: PFIZER
  Company Number: CN-PFIZER INC-PV202500133411

PATIENT
  Age: 38 Year
  Sex: Male

DRUGS (4)
  1. CYTARABINE [Suspect]
     Active Substance: CYTARABINE
     Indication: Acute lymphocytic leukaemia
     Dosage: 3.5 G, 1X/DAY
     Route: 041
     Dates: start: 20251017, end: 20251017
  2. CYTARABINE [Suspect]
     Active Substance: CYTARABINE
     Indication: Myelosuppression
  3. METHOTREXATE [Suspect]
     Active Substance: METHOTREXATE
     Indication: Acute lymphocytic leukaemia
     Dosage: 1.6 G, 1X/DAY
     Route: 041
     Dates: start: 20251017, end: 20251017
  4. METHOTREXATE [Suspect]
     Active Substance: METHOTREXATE
     Indication: Myelosuppression

REACTIONS (6)
  - Myelosuppression [Recovering/Resolving]
  - White blood cell count decreased [Recovering/Resolving]
  - Neutrophil count decreased [Recovering/Resolving]
  - Platelet count decreased [Recovering/Resolving]
  - Haemoglobin decreased [Recovering/Resolving]
  - Febrile neutropenia [Recovering/Resolving]

NARRATIVE: CASE EVENT DATE: 20251027
